FAERS Safety Report 15340551 (Version 1)
Quarter: 2018Q3

REPORT INFORMATION
  Report Type: Report from Study
  Country: PE (occurrence: PE)
  Receive Date: 20180831
  Receipt Date: 20180831
  Transmission Date: 20181010
  Serious: Yes (Death, Hospitalization)
  Sender: FDA-Public Use
  Company Number: PHHY2018PE084125

PATIENT
  Age: 54 Year
  Sex: Male

DRUGS (2)
  1. AFINITOR [Suspect]
     Active Substance: EVEROLIMUS
     Indication: NEUROENDOCRINE TUMOUR
     Dosage: 10 MG, QD
     Route: 048
     Dates: start: 20180709
  2. AFINITOR [Suspect]
     Active Substance: EVEROLIMUS
     Indication: RENAL CANCER
     Dosage: 10 MG, QD
     Route: 048
     Dates: start: 20180801

REACTIONS (10)
  - Malaise [Unknown]
  - General physical health deterioration [Unknown]
  - Pain [Unknown]
  - Dry mouth [Recovering/Resolving]
  - Back injury [Recovering/Resolving]
  - Nausea [Unknown]
  - Limb discomfort [Unknown]
  - Decubitus ulcer [Recovering/Resolving]
  - Death [Fatal]
  - Decreased immune responsiveness [Unknown]

NARRATIVE: CASE EVENT DATE: 20180720
